FAERS Safety Report 15620608 (Version 2)
Quarter: 2018Q4

REPORT INFORMATION
  Report Type: Report from Study
  Country: CA (occurrence: CA)
  Receive Date: 20181115
  Receipt Date: 20181228
  Transmission Date: 20190205
  Serious: Yes (Other)
  Sender: FDA-Public Use
  Company Number: CA-ROCHE-2212907

PATIENT
  Age: 46 Year
  Sex: Female

DRUGS (4)
  1. OCREVUS [Suspect]
     Active Substance: OCRELIZUMAB
     Indication: RELAPSING-REMITTING MULTIPLE SCLEROSIS
     Dosage: 300 MG AT DAY 0 AND 14, THEN 600 MG EVERY 6 MONTH
     Route: 042
     Dates: start: 20180418
  2. OCREVUS [Suspect]
     Active Substance: OCRELIZUMAB
     Dosage: 30 MG/ML VIAL
     Route: 042
     Dates: start: 20180418
  3. TYLENOL [Suspect]
     Active Substance: ACETAMINOPHEN
     Indication: BONE PAIN
  4. TYLENOL [Suspect]
     Active Substance: ACETAMINOPHEN
     Indication: MUSCLE SPASTICITY
     Route: 065
     Dates: start: 20181104

REACTIONS (5)
  - Localised infection [Recovered/Resolved]
  - Peripheral coldness [Unknown]
  - Muscle spasticity [Recovered/Resolved]
  - Bone pain [Recovered/Resolved]
  - Asthenia [Recovered/Resolved]

NARRATIVE: CASE EVENT DATE: 20181102
